FAERS Safety Report 7088047-0 (Version None)
Quarter: 2010Q4

REPORT INFORMATION
  Report Type: 
  Country: None (occurrence: None)
  Receive Date: 20101108
  Receipt Date: 20101025
  Transmission Date: 20110411
  Serious: Yes (Other)
  Sender: FDA-Public Use
  Company Number: PHEH2007US07643

PATIENT
  Sex: Female

DRUGS (8)
  1. ZOMETA [Suspect]
     Indication: MULTIPLE MYELOMA
  2. AREDIA [Suspect]
  3. BISPHOSPHONATES [Suspect]
  4. LISINOPRIL [Concomitant]
  5. MS CONTIN [Concomitant]
  6. COMPAZINE [Concomitant]
  7. CALCIUM [Concomitant]
  8. MULTI-VITAMINS [Concomitant]

REACTIONS (16)
  - ALVEOLOPLASTY [None]
  - BLOOD GLUCOSE INCREASED [None]
  - BONE DISORDER [None]
  - CARDIOMEGALY [None]
  - DEBRIDEMENT [None]
  - GINGIVAL PAIN [None]
  - LOCALISED INFECTION [None]
  - OSTEOMYELITIS [None]
  - OSTEONECROSIS OF JAW [None]
  - PLEURAL EFFUSION [None]
  - PURULENCE [None]
  - PYREXIA [None]
  - RENAL FAILURE ACUTE [None]
  - SPINAL COMPRESSION FRACTURE [None]
  - SWELLING [None]
  - TOOTH EXTRACTION [None]
